FAERS Safety Report 6557174-6 (Version None)
Quarter: 2010Q1

REPORT INFORMATION
  Report Type: 
  Country: None (occurrence: None)
  Receive Date: 20100127
  Receipt Date: 20100127
  Transmission Date: 20100710
  Serious: Yes (Hospitalization)
  Sender: FDA-Public Use
  Company Number: None

PATIENT
  Sex: Male
  Weight: 72.56 kg

DRUGS (2)
  1. CISPLATIN [Suspect]
     Dosage: 190 MG
  2. ETOPOSIDE [Suspect]
     Dosage: 456 MG

REACTIONS (4)
  - FAECES DISCOLOURED [None]
  - HEADACHE [None]
  - PLATELET COUNT DECREASED [None]
  - VISION BLURRED [None]
